FAERS Safety Report 6755988-0 (Version None)
Quarter: 2010Q2

REPORT INFORMATION
  Report Type: 
  Country: None (occurrence: None)
  Receive Date: 20100604
  Receipt Date: 20100602
  Transmission Date: 20101027
  Serious: Yes (Death)
  Sender: FDA-Public Use
  Company Number: PHHY2010EC35918

PATIENT
  Age: 82 Year
  Sex: Male

DRUGS (1)
  1. STALEVO 100 [Suspect]
     Indication: PARKINSON'S DISEASE
     Dosage: UNK
     Route: 048
     Dates: start: 20070101

REACTIONS (5)
  - DISEASE PROGRESSION [None]
  - DYSPHONIA [None]
  - MALAISE [None]
  - PARKINSON'S DISEASE [None]
  - SPEECH DISORDER [None]
